FAERS Safety Report 5336714-9 (Version None)
Quarter: 2007Q2

REPORT INFORMATION
  Report Type: 
  Country: None (occurrence: None)
  Receive Date: 20070524
  Receipt Date: 20070524
  Transmission Date: 20071010
  Serious: Yes (Hospitalization)
  Sender: FDA-Public Use
  Company Number: None

PATIENT
  Age: 81 Year
  Sex: Male
  Weight: 72.1219 kg

DRUGS (2)
  1. ASPIRIN [Suspect]
     Indication: HEADACHE
     Dosage: 325 MG PRN
  2. IBUPROFEN [Suspect]
     Dosage: 200MG OTC PRN

REACTIONS (3)
  - ANAEMIA [None]
  - GASTRIC ULCER [None]
  - GASTROINTESTINAL HAEMORRHAGE [None]
